FAERS Safety Report 12666457 (Version 2)
Quarter: 2016Q4

REPORT INFORMATION
  Report Type: Spontaneous
  Country: US (occurrence: US)
  Receive Date: 20160819
  Receipt Date: 20161004
  Transmission Date: 20170207
  Serious: No
  Sender: FDA-Public Use
  Company Number: US-ASTRAZENECA-2016SE83657

PATIENT
  Sex: Male
  Weight: 108.9 kg

DRUGS (4)
  1. LOT OF MEDICATION [Concomitant]
  2. SYMBICORT [Suspect]
     Active Substance: BUDESONIDE\FORMOTEROL FUMARATE DIHYDRATE
     Indication: CHRONIC OBSTRUCTIVE PULMONARY DISEASE
     Dosage: 160/4.5, 2 PUFFS TWICE A DAY
     Route: 055
  3. SYNTHROID [Concomitant]
     Active Substance: LEVOTHYROXINE SODIUM
     Indication: THYROID DISORDER
  4. TUDORZA PRESSAIR [Suspect]
     Active Substance: ACLIDINIUM BROMIDE
     Indication: CHRONIC OBSTRUCTIVE PULMONARY DISEASE
     Dosage: 400MCG, 1 PUFF TWICE A DAY
     Route: 055

REACTIONS (4)
  - Drug dose omission [Unknown]
  - Intentional product misuse [Unknown]
  - Memory impairment [Unknown]
  - Product quality issue [Unknown]
